FAERS Safety Report 6902284-4 (Version None)
Quarter: 2010Q3

REPORT INFORMATION
  Report Type: 
  Country: None (occurrence: None)
  Receive Date: 20100803
  Receipt Date: 20080503
  Transmission Date: 20110219
  Serious: No
  Sender: FDA-Public Use
  Company Number: US-PFIZER INC-2008021045

PATIENT
  Sex: Female
  Weight: 59 kg

DRUGS (3)
  1. LYRICA [Suspect]
     Indication: FIBROMYALGIA
     Route: 048
     Dates: start: 20080228
  2. TOPROL-XL [Concomitant]
  3. ALTACE [Concomitant]

REACTIONS (2)
  - INFLUENZA LIKE ILLNESS [None]
  - PALPITATIONS [None]
